FAERS Safety Report 24442326 (Version 3)
Quarter: 2025Q3

REPORT INFORMATION
  Report Type: Spontaneous
  Country: US (occurrence: US)
  Receive Date: 20241016
  Receipt Date: 20250916
  Transmission Date: 20251021
  Serious: No
  Sender: ROCHE
  Company Number: US-ROCHE-3545721

PATIENT
  Age: 14 Year
  Sex: Male
  Weight: 79.38 kg

DRUGS (2)
  1. HEMLIBRA [Suspect]
     Active Substance: EMICIZUMAB-KXWH
     Indication: Factor VIII deficiency
     Dosage: STRENGTH: 150 MG/0.7 ML
     Route: 058
     Dates: start: 202403
  2. HEMLIBRA [Suspect]
     Active Substance: EMICIZUMAB-KXWH
     Dosage: STRENGTH: 150 MG/0.7 ML
     Route: 058
     Dates: start: 202403

REACTIONS (3)
  - Haemorrhage [Unknown]
  - Injury [Unknown]
  - Weight increased [Unknown]

NARRATIVE: CASE EVENT DATE: 20240409
